FAERS Safety Report 6312203-X (Version None)
Quarter: 2009Q3

REPORT INFORMATION
  Report Type: 
  Country: None (occurrence: None)
  Receive Date: 20090817
  Receipt Date: 20090807
  Transmission Date: 20100115
  Serious: Yes (Hospitalization)
  Sender: FDA-Public Use
  Company Number: FR-PFIZER INC-2009251921

PATIENT
  Age: 80 Year

DRUGS (5)
  1. TAHOR [Suspect]
     Dosage: UNK MG, UNK
     Route: 048
     Dates: end: 20090201
  2. KARDEGIC [Concomitant]
     Dosage: UNK
  3. PRAZEPAM [Concomitant]
  4. NOZINAN [Concomitant]
  5. LYRICA [Concomitant]
     Dosage: UNK
     Dates: start: 20081201

REACTIONS (1)
  - INTERSTITIAL LUNG DISEASE [None]
